FAERS Safety Report 7988799-9 (Version None)
Quarter: 2011Q4

REPORT INFORMATION
  Report Type: 
  Country: None (occurrence: None)
  Receive Date: 20111219
  Receipt Date: 20111213
  Transmission Date: 20120403
  Serious: Yes (Other)
  Sender: FDA-Public Use
  Company Number: US-BIOGENIDEC-2011BI047083

PATIENT
  Age: 35 Year
  Sex: Female

DRUGS (1)
  1. AVONEX [Suspect]
     Indication: MULTIPLE SCLEROSIS
     Route: 030
     Dates: start: 20110927

REACTIONS (7)
  - CONVULSION [None]
  - HYPOAESTHESIA [None]
  - DEPRESSION [None]
  - STRESS [None]
  - INFLUENZA LIKE ILLNESS [None]
  - VOMITING [None]
  - MIGRAINE [None]
